FAERS Safety Report 4675335-8 (Version None)
Quarter: 2005Q2

REPORT INFORMATION
  Report Type: 
  Country: None (occurrence: None)
  Receive Date: 20050527
  Receipt Date: 20040309
  Transmission Date: 20051028
  Serious: Yes (Other)
  Sender: FDA-Public Use
  Company Number: US-BRISTOL-MYERS SQUIBB COMPANY-12527966

PATIENT
  Age: 48 Year
  Sex: Female
  Weight: 73 kg

DRUGS (4)
  1. ABILIFY [Suspect]
     Indication: SCHIZOAFFECTIVE DISORDER
     Dosage: PT ON ABILITY ^SINCE THE BEGINNING OF 2003^.
     Dates: start: 20030101
  2. TOPAMAX [Concomitant]
     Indication: WEIGHT INCREASED
     Dates: start: 20040308
  3. EFFEXOR [Concomitant]
  4. TRAZODONE HCL [Concomitant]
     Dosage: TWO TABLETS DAILY AND THREE TABLETS NIGHTLY

REACTIONS (1)
  - WEIGHT INCREASED [None]
